FAERS Safety Report 18575230 (Version 1)
Quarter: 2020Q4

REPORT INFORMATION
  Report Type: Report from Study
  Country: IT (occurrence: IT)
  Receive Date: 20201203
  Receipt Date: 20201203
  Transmission Date: 20210114
  Serious: Yes (Other)
  Sender: FDA-Public Use
  Company Number: IT-MYLANLABS-2020M1098104

PATIENT
  Age: 33 Year
  Sex: Female

DRUGS (1)
  1. TRIAZOLAM. [Suspect]
     Active Substance: TRIAZOLAM
     Indication: INSOMNIA
     Dosage: 9 GTT DROPS, QD
     Route: 048
     Dates: start: 20200706, end: 20201006

REACTIONS (1)
  - Retrograde amnesia [Recovering/Resolving]

NARRATIVE: CASE EVENT DATE: 20201006
